FAERS Safety Report 6733058-5 (Version None)
Quarter: 2010Q2

REPORT INFORMATION
  Report Type: 
  Country: None (occurrence: None)
  Receive Date: 20100518
  Receipt Date: 20100511
  Transmission Date: 20101027
  Serious: Yes (Death)
  Sender: FDA-Public Use
  Company Number: 2010JP002782

PATIENT
  Age: 78 Year
  Sex: Male
  Weight: 49 kg

DRUGS (9)
  1. PROGRAF [Suspect]
     Indication: RHEUMATOID ARTHRITIS
     Dates: start: 20081001
  2. PREDNISOLONE [Concomitant]
  3. SALAZOSULFAPYRIDINE (SULFASALAZINE) FORMULATION UNKNOWN [Concomitant]
  4. BUCILLAMINE (BUCILLAMINE) FORMULATION UNKNOWN [Concomitant]
  5. TOCILIZUMAB (TOCILIZUMAB) FORMULATION UNKNOWN [Concomitant]
  6. MEROPENEM (MEROPENEM) FORMULATION UNKNOWN [Concomitant]
  7. ITRACONAZOLE (ITRACONAZOLE) FORMULATION UNKNOWN [Concomitant]
  8. SODIUM AUROTHIOMALATE (SODIUM AUROTHIOMALATE) FORMULATION UNKNOWN [Concomitant]
  9. CYCLOPHOSPHAMIDE [Concomitant]

REACTIONS (14)
  - ARTHRALGIA [None]
  - BLOOD CULTURE POSITIVE [None]
  - CANDIDIASIS [None]
  - CARDIAC ARREST [None]
  - CONDITION AGGRAVATED [None]
  - CULTURE WOUND POSITIVE [None]
  - DEVICE RELATED SEPSIS [None]
  - LEUKOCYTOCLASTIC VASCULITIS [None]
  - LUNG INFILTRATION [None]
  - NO THERAPEUTIC RESPONSE [None]
  - RESPIRATORY FAILURE [None]
  - RHEUMATOID ARTHRITIS [None]
  - SPOROTRICHOSIS [None]
  - SPUTUM CULTURE POSITIVE [None]
